FAERS Safety Report 4593025-7 (Version None)
Quarter: 2005Q1

REPORT INFORMATION
  Report Type: 
  Country: None (occurrence: None)
  Receive Date: 20050228
  Receipt Date: 20050218
  Transmission Date: 20050727
  Serious: Yes (Hospitalization)
  Sender: FDA-Public Use
  Company Number: DE-ABBOTT-05P-062-0291749-00

PATIENT
  Age: 36 Year
  Sex: Female

DRUGS (9)
  1. AKINETON [Suspect]
     Indication: AKATHISIA
     Route: 048
     Dates: start: 20011210, end: 20011210
  2. OLANZAPINE [Suspect]
     Indication: DRUG USE FOR UNKNOWN INDICATION
     Route: 048
     Dates: start: 20011020, end: 20011205
  3. OLANZAPINE [Suspect]
     Dates: start: 20011211
  4. AMISULPRIDE [Interacting]
     Indication: DRUG USE FOR UNKNOWN INDICATION
     Route: 048
     Dates: start: 20011206, end: 20011211
  5. POTASSIUM IODIDE [Suspect]
     Indication: DRUG USE FOR UNKNOWN INDICATION
     Route: 048
     Dates: start: 20011115
  6. HALOPERIDOL [Interacting]
     Indication: DRUG USE FOR UNKNOWN INDICATION
     Route: 048
     Dates: start: 20011127, end: 20011209
  7. DIAZEPAM [Concomitant]
     Indication: DRUG USE FOR UNKNOWN INDICATION
     Route: 048
     Dates: start: 20011024, end: 20011105
  8. DIAZEPAM [Concomitant]
     Route: 048
     Dates: start: 20011106, end: 20011113
  9. DIAZEPAM [Concomitant]
     Route: 048
     Dates: start: 20011114, end: 20011120

REACTIONS (3)
  - AKATHISIA [None]
  - DRUG INTERACTION [None]
  - TREMOR [None]
